FAERS Safety Report 16654820 (Version 1)
Quarter: 2019Q3

REPORT INFORMATION
  Report Type: Other
  Country: BE (occurrence: BE)
  Receive Date: 20190801
  Receipt Date: 20190801
  Transmission Date: 20191004
  Serious: Yes (Other)
  Sender: FDA-Public Use
  Company Number: BE-APOTEX-2019AP019090

PATIENT
  Sex: Male
  Weight: 105 kg

DRUGS (2)
  1. PANTOPRAZOLE [Suspect]
     Active Substance: PANTOPRAZOLE
     Indication: REFLUX GASTRITIS
     Dosage: UNK UNK, QD, ONE TABLET
     Route: 048
     Dates: start: 20190501, end: 20190530
  2. UNI DIAMICRON [Suspect]
     Active Substance: GLICLAZIDE
     Indication: DIABETES MELLITUS
     Dosage: UNK UNK, Q.AM, TWO TABLETS
     Route: 048
     Dates: start: 20190501, end: 20190531

REACTIONS (3)
  - Pruritus [Recovering/Resolving]
  - Diarrhoea [Recovering/Resolving]
  - Dermatitis bullous [Recovering/Resolving]

NARRATIVE: CASE EVENT DATE: 20190501
